FAERS Safety Report 15488255 (Version 1)
Quarter: 2018Q4

REPORT INFORMATION
  Report Type: Spontaneous
  Country: US (occurrence: US)
  Receive Date: 20181011
  Receipt Date: 20181011
  Transmission Date: 20190205
  Serious: No
  Sender: FDA-Public Use
  Company Number: US-RISING PHARMACEUTICALS, INC.-2017RIS00311

PATIENT
  Age: 78 Year
  Sex: Male
  Weight: 95.24 kg

DRUGS (16)
  1. NAPROXEN. [Concomitant]
     Active Substance: NAPROXEN
     Dosage: 2 TABLETS, 1X/DAY
  2. DOCUSATE SODIUM/SENNOSIDES [Concomitant]
     Active Substance: DOCUSATE SODIUM\SENNOSIDES
     Dosage: 1 TABLETS, 4X/DAY
     Dates: start: 20171008
  3. ALFUZOSIN ER [Concomitant]
     Dosage: 10 MG, 1X/DAY
  4. MONTELUKAST SODIUM. [Concomitant]
     Active Substance: MONTELUKAST SODIUM
     Dosage: 10 MG, 1X/DAY
  5. NITROGLYCERIN. [Concomitant]
     Active Substance: NITROGLYCERIN
     Dosage: UNK, AS NEEDED
  6. PEPPERMINT OIL [Concomitant]
     Active Substance: PEPPERMINT OIL
     Dosage: 1 CAPSULES, 1X/DAY
  7. ATENOLOL. [Concomitant]
     Active Substance: ATENOLOL
     Dosage: 1 TABLETS, 1X/DAY
  8. PROCTOZONE-HC [Suspect]
     Active Substance: HYDROCORTISONE
     Indication: HAEMORRHOIDS
     Dosage: UNK, 3X/DAY
     Route: 061
     Dates: start: 20171009, end: 20171012
  9. PROAIR HFA [Concomitant]
     Active Substance: ALBUTEROL SULFATE
     Dosage: UNK, AS NEEDED
     Route: 055
  10. AMLODIPINE [Concomitant]
     Active Substance: AMLODIPINE BESYLATE
     Dosage: 1.5 TABLETS, 1X/DAY
  11. PREPERATION H [Suspect]
     Active Substance: COCOA BUTTER\PETROLATUM\PHENYLEPHRINE HYDROCHLORIDE\PHENYLEPHRINE HYDROCHLORIDE OR MINERAL OIL
     Dosage: 1 DOSAGE UNITS, 1X/DAY
     Dates: end: 20171012
  12. LOSARTAN. [Concomitant]
     Active Substance: LOSARTAN
     Dosage: 1 TABLETS, 1X/DAY
  13. CLONIDINE. [Concomitant]
     Active Substance: CLONIDINE
     Dosage: UNK
  14. CLONIDINE. [Concomitant]
     Active Substance: CLONIDINE
     Dosage: 0.5 TABLETS, 2X/DAY
  15. ADVAIR DISKUS [Concomitant]
     Active Substance: FLUTICASONE PROPIONATE\SALMETEROL XINAFOATE
     Dosage: 1 DOSAGE UNITS, 2X/DAY
     Route: 055
  16. CRESTOR [Concomitant]
     Active Substance: ROSUVASTATIN CALCIUM
     Dosage: 1 TABLETS, 3X/WEEK

REACTIONS (10)
  - Somnolence [Not Recovered/Not Resolved]
  - Wheezing [Unknown]
  - Chest discomfort [Unknown]
  - Rectal haemorrhage [Unknown]
  - Fatigue [Not Recovered/Not Resolved]
  - Dizziness [Recovered/Resolved]
  - Oropharyngeal pain [Unknown]
  - Anorectal discomfort [Recovered/Resolved]
  - Dysuria [Recovered/Resolved]
  - Hypertension [Not Recovered/Not Resolved]

NARRATIVE: CASE EVENT DATE: 201710
